FAERS Safety Report 21107038 (Version 11)
Quarter: 2023Q2

REPORT INFORMATION
  Report Type: Report from Study
  Country: US (occurrence: US)
  Receive Date: 20220720
  Receipt Date: 20230630
  Transmission Date: 20230722
  Serious: Yes (Hospitalization, Other)
  Sender: FDA-Public Use
  Company Number: US-JAZZ-2022-US-012359

PATIENT
  Age: 56 Year
  Sex: Female
  Weight: 58.503 kg

DRUGS (3)
  1. EPIDIOLEX [Suspect]
     Active Substance: CANNABIDIOL
     Indication: Product used for unknown indication
     Dosage: 3.5 MILLILITER, BID
     Route: 048
  2. EPIDIOLEX [Suspect]
     Active Substance: CANNABIDIOL
     Dosage: 4 MILLILITER, BID
     Route: 048
  3. EPIDIOLEX [Suspect]
     Active Substance: CANNABIDIOL
     Dosage: 5 MILLILITER, BID
     Route: 048
     Dates: start: 20230622, end: 20230622

REACTIONS (14)
  - Aneurysm [Unknown]
  - Seizure [Unknown]
  - Fall [Unknown]
  - Face injury [Unknown]
  - Eyelid injury [Unknown]
  - Ear injury [Unknown]
  - Seizure [Unknown]
  - Head injury [Unknown]
  - Fall [Unknown]
  - Seizure [Recovered/Resolved]
  - Fall [Unknown]
  - Head injury [Unknown]
  - Headache [Unknown]
  - Unevaluable event [Unknown]

NARRATIVE: CASE EVENT DATE: 20220806
